FAERS Safety Report 12342365 (Version 2)
Quarter: 2016Q2

REPORT INFORMATION
  Report Type: Spontaneous
  Country: US (occurrence: US)
  Receive Date: 20160506
  Receipt Date: 20160510
  Transmission Date: 20160815
  Serious: Yes (Other)
  Sender: FDA-Public Use
  Company Number: US-PFIZER INC-2016246111

PATIENT
  Age: 50 Year
  Sex: Female

DRUGS (2)
  1. PRISTIQ EXTENDED-RELEASE [Suspect]
     Active Substance: DESVENLAFAXINE SUCCINATE
     Dosage: 50 MG, ALTERNATE DAY
  2. PRISTIQ EXTENDED-RELEASE [Suspect]
     Active Substance: DESVENLAFAXINE SUCCINATE
     Dosage: 100 MG, DAILY

REACTIONS (11)
  - Dizziness [Unknown]
  - Paraesthesia [Unknown]
  - Asthenia [Unknown]
  - Myalgia [Unknown]
  - Muscle spasms [Unknown]
  - Blood glucose increased [Unknown]
  - Hypersensitivity [Unknown]
  - Hyperhidrosis [Unknown]
  - Blood pressure increased [Unknown]
  - Fatigue [Unknown]
  - Lethargy [Unknown]
